FAERS Safety Report 9507902 (Version 1)
Quarter: 2013Q3

REPORT INFORMATION
  Report Type: Spontaneous
  Country: US (occurrence: US)
  Receive Date: 20130909
  Receipt Date: 20130909
  Transmission Date: 20140515
  Serious: Yes (Other)
  Sender: FDA-Public Use
  Company Number: US-FRI-1000048435

PATIENT
  Age: 59 Year
  Sex: Female

DRUGS (11)
  1. LINZESS [Suspect]
     Indication: IRRITABLE BOWEL SYNDROME
     Dosage: 145 MCG
     Route: 048
     Dates: start: 201308, end: 20130904
  2. LINZESS [Suspect]
     Indication: CONSTIPATION
  3. LAMICTAL [Concomitant]
     Indication: POST-TRAUMATIC STRESS DISORDER
     Dosage: 1/2 TABLET BID
  4. GLIPIZIDE [Concomitant]
     Indication: DIABETES MELLITUS
  5. LEVOTHYROXINE [Concomitant]
     Indication: THYROIDECTOMY
  6. EVISTA [Concomitant]
     Dosage: 60 MG
  7. XANAX [Concomitant]
     Indication: POST-TRAUMATIC STRESS DISORDER
  8. CRESTOR [Concomitant]
     Indication: BLOOD CHOLESTEROL INCREASED
  9. OXYCODONE-ACETAMINOPHEN [Concomitant]
     Dosage: 7.5/325 MG
  10. LEXAPRO [Concomitant]
     Indication: POST-TRAUMATIC STRESS DISORDER
     Dosage: 20 MG
  11. VITAMIN B-12 [Concomitant]

REACTIONS (3)
  - Melaena [Unknown]
  - Abdominal pain [Not Recovered/Not Resolved]
  - Diarrhoea [Not Recovered/Not Resolved]
